FAERS Safety Report 6471993-6 (Version None)
Quarter: 2009Q4

REPORT INFORMATION
  Report Type: 
  Country: None (occurrence: None)
  Receive Date: 20091203
  Receipt Date: 20080514
  Transmission Date: 20100525
  Serious: Yes (Hospitalization, Other)
  Sender: FDA-Public Use
  Company Number: US-ELI_LILLY_AND_COMPANY-US200804002843

PATIENT
  Age: 82 Year
  Sex: Female

DRUGS (5)
  1. GEMZAR [Suspect]
     Indication: NON-SMALL CELL LUNG CANCER STAGE III
     Dosage: 800 MG, D1,8,15
     Dates: start: 20080420
  2. CARDURA [Concomitant]
     Dosage: 4 MG, DAILY (1/D)
  3. HYDROCHLOROTHIAZIDE [Concomitant]
     Dosage: 25 MG, DAILY (1/D)
  4. DUONEB [Concomitant]
  5. FERROUS SULFATE TAB [Concomitant]
     Dosage: UNK, DAILY (1/D)

REACTIONS (4)
  - DIZZINESS [None]
  - FALL [None]
  - LACUNAR INFARCTION [None]
  - SYNCOPE [None]
